FAERS Safety Report 4376950-1 (Version None)
Quarter: 2004Q2

REPORT INFORMATION
  Report Type: 
  Country: None (occurrence: None)
  Receive Date: 20040614
  Receipt Date: 20040602
  Transmission Date: 20050107
  Serious: Yes (Other)
  Sender: FDA-Public Use
  Company Number: US-BRISTOL-MYERS SQUIBB COMPANY-12605994

PATIENT
  Age: 77 Year
  Sex: Male

DRUGS (12)
  1. SERZONE [Suspect]
     Dates: start: 19970626, end: 20020228
  2. ALPRAZOLAM [Concomitant]
  3. AVAPRO [Concomitant]
  4. AVALIDE [Concomitant]
  5. FUROSEMIDE [Concomitant]
  6. SYNTHROID [Concomitant]
  7. PROZAC [Concomitant]
  8. ZYPREXA [Concomitant]
  9. BUMEX [Concomitant]
  10. ALTACE [Concomitant]
  11. PLAVIX [Concomitant]
  12. MULTIVITAMIN [Concomitant]

REACTIONS (1)
  - HEPATIC CIRRHOSIS [None]
